FAERS Safety Report 14968896 (Version 2)
Quarter: 2018Q2

REPORT INFORMATION
  Report Type: Spontaneous
  Country: US (occurrence: US)
  Receive Date: 20180604
  Receipt Date: 20180604
  Transmission Date: 20180711
  Serious: Yes (Other)
  Sender: FDA-Public Use
  Company Number: US-PFIZER INC-2018221367

PATIENT
  Age: 53 Year
  Sex: Female
  Weight: 53.98 kg

DRUGS (1)
  1. LYRICA [Suspect]
     Active Substance: PREGABALIN
     Indication: NEUROPATHY PERIPHERAL
     Dosage: 100 MG, 3X/DAY (MORNING, IMMEDIATELY/ MIDDAY AROUND 5 OR 6, THEN AROUND 11 OR MIDNIGHT)
     Route: 048
     Dates: start: 2011

REACTIONS (8)
  - Product use in unapproved indication [Unknown]
  - Metastases to liver [Not Recovered/Not Resolved]
  - Metastases to bladder [Not Recovered/Not Resolved]
  - Neoplasm progression [Not Recovered/Not Resolved]
  - Pain [Unknown]
  - Drug dose omission [Unknown]
  - Feeling abnormal [Unknown]
  - Metastases to stomach [Not Recovered/Not Resolved]
